FAERS Safety Report 5444678-2 (Version None)
Quarter: 2007Q3

REPORT INFORMATION
  Report Type: 
  Country: None (occurrence: None)
  Receive Date: 20070906
  Receipt Date: 20070124
  Transmission Date: 20080115
  Serious: No
  Sender: FDA-Public Use
  Company Number: A0637228A

PATIENT
  Age: 45 Year
  Sex: Female
  Weight: 185.9 kg

DRUGS (9)
  1. REQUIP [Suspect]
     Indication: RESTLESS LEGS SYNDROME
     Dosage: 1MG PER DAY
     Route: 048
     Dates: start: 20060101
  2. BYETTA [Suspect]
     Dosage: 5MCG TWICE PER DAY
     Route: 058
     Dates: start: 20061102
  3. DIAVAN [Concomitant]
  4. ASPIRIN [Concomitant]
  5. RANITIDINE [Concomitant]
  6. HUMALOG [Concomitant]
  7. LANTUS [Concomitant]
  8. LASIX [Concomitant]
  9. CPAP [Concomitant]

REACTIONS (6)
  - BACK DISORDER [None]
  - DECREASED APPETITE [None]
  - DISORIENTATION [None]
  - DIZZINESS [None]
  - FALL [None]
  - WEIGHT INCREASED [None]
